FAERS Safety Report 21878685 (Version 1)
Quarter: 2023Q1

REPORT INFORMATION
  Report Type: Spontaneous
  Country: US (occurrence: None)
  Receive Date: 20230117
  Receipt Date: 20230117
  Transmission Date: 20230417
  Serious: No
  Sender: FDA-Public Use
  Company Number: None

PATIENT
  Age: 70 Year
  Sex: Male
  Weight: 85.82 kg

DRUGS (7)
  1. ABIRATERONE [Suspect]
     Active Substance: ABIRATERONE
     Indication: Prostate cancer
     Dosage: FREQUENCY : DAILY;?
     Route: 048
     Dates: start: 202108, end: 202201
  2. CALCIUM + VITAMIN D3 [Concomitant]
  3. CASODEX [Concomitant]
  4. LUPRON DEPOT [Concomitant]
  5. PREDNISONE [Concomitant]
  6. TAMSULOSIN [Concomitant]
  7. TYLENOL [Concomitant]

REACTIONS (1)
  - Myocardial infarction [None]
